FAERS Safety Report 8099756-9 (Version None)
Quarter: 2012Q1

REPORT INFORMATION
  Report Type: 
  Country: None (occurrence: None)
  Receive Date: 20120129
  Receipt Date: 20110914
  Transmission Date: 20120608
  Serious: No
  Sender: FDA-Public Use
  Company Number: US-ABBOTT-11P-163-0855440-00

PATIENT
  Sex: Female
  Weight: 42.222 kg

DRUGS (5)
  1. HUMIRA [Suspect]
     Indication: PSORIASIS
     Route: 058
     Dates: start: 20110502, end: 20110502
  2. NON-STEROIDAL EYE DROP [Concomitant]
     Indication: PRODUCT USED FOR UNKNOWN INDICATION
  3. HORMONES [Concomitant]
     Indication: MENOPAUSE
  4. AMLODIPINE [Concomitant]
     Indication: HYPERTENSION
  5. TRAZODONE HCL [Concomitant]
     Indication: DEPRESSION

REACTIONS (5)
  - ERYTHEMA [None]
  - SKIN EXFOLIATION [None]
  - INJECTION SITE PAIN [None]
  - DERMATITIS EXFOLIATIVE [None]
  - RASH GENERALISED [None]
